FAERS Safety Report 7712996-0 (Version None)
Quarter: 2011Q3

REPORT INFORMATION
  Report Type: 
  Country: None (occurrence: None)
  Receive Date: 20110826
  Receipt Date: 20110816
  Transmission Date: 20111222
  Serious: Yes (Hospitalization, Other)
  Sender: FDA-Public Use
  Company Number: DE-JNJFOC-20061200545

PATIENT
  Age: 57 Year
  Sex: Male

DRUGS (19)
  1. REMICADE [Suspect]
     Route: 042
     Dates: start: 20051115, end: 20051115
  2. LEFLUNOMIDE [Concomitant]
     Route: 065
  3. REMICADE [Suspect]
     Route: 042
     Dates: start: 20041116, end: 20041116
  4. REMICADE [Suspect]
     Route: 042
     Dates: start: 20091117
  5. REMICADE [Suspect]
     Route: 042
     Dates: start: 20011106, end: 20011106
  6. REMICADE [Suspect]
     Route: 042
     Dates: start: 20081118
  7. REMICADE [Suspect]
     Route: 042
     Dates: start: 20020506, end: 20020506
  8. REMICADE [Suspect]
     Route: 042
     Dates: start: 20021120, end: 20021120
  9. REMICADE [Suspect]
     Route: 042
     Dates: start: 20040525, end: 20040525
  10. PREDNISONE [Concomitant]
     Route: 065
     Dates: start: 20011215
  11. REMICADE [Suspect]
     Indication: RHEUMATOID ARTHRITIS
     Route: 042
     Dates: start: 20101118
  12. REMICADE [Suspect]
     Route: 042
     Dates: start: 20061114, end: 20061114
  13. REMICADE [Suspect]
     Route: 042
     Dates: start: 20071127
  14. REMICADE [Suspect]
     Route: 042
     Dates: start: 20011101
  15. CELLUFRESH [Concomitant]
     Route: 065
     Dates: start: 20060401
  16. REMICADE [Suspect]
     Route: 042
     Dates: start: 20020214, end: 20020214
  17. REMICADE [Suspect]
     Route: 042
     Dates: start: 20030521, end: 20030521
  18. REMICADE [Suspect]
     Route: 042
     Dates: start: 20031125, end: 20031125
  19. RANTUDIL [Concomitant]
     Route: 065
     Dates: start: 20020120

REACTIONS (4)
  - BURSITIS [None]
  - IMPAIRED HEALING [None]
  - DERMATITIS ALLERGIC [None]
  - STAPHYLOCOCCAL INFECTION [None]
